FAERS Safety Report 12286169 (Version 1)
Quarter: 2016Q2

REPORT INFORMATION
  Report Type: Spontaneous
  Country: US (occurrence: US)
  Receive Date: 20160420
  Receipt Date: 20160420
  Transmission Date: 20160815
  Serious: No
  Sender: FDA-Public Use
  Company Number: US-009507513-1604USA008247

PATIENT
  Age: 54 Year
  Sex: Male

DRUGS (3)
  1. TEMODAR [Suspect]
     Active Substance: TEMOZOLOMIDE
     Indication: GLIOSARCOMA
     Dosage: UNK
     Route: 048
  2. TEMODAR [Suspect]
     Active Substance: TEMOZOLOMIDE
     Indication: METASTASES TO MENINGES
  3. TEMODAR [Suspect]
     Active Substance: TEMOZOLOMIDE
     Indication: SPINAL CORD NEOPLASM

REACTIONS (1)
  - Drug ineffective [Unknown]
